FAERS Safety Report 23499410 (Version 1)
Quarter: 2024Q1

REPORT INFORMATION
  Report Type: Spontaneous
  Country: US (occurrence: None)
  Receive Date: 20240207
  Receipt Date: 20240207
  Transmission Date: 20240410
  Serious: Yes (Disabling)
  Sender: FDA-Public Use
  Company Number: None

PATIENT
  Age: 27 Year
  Sex: Female
  Weight: 47.25 kg

DRUGS (10)
  1. MOXIFLOXACIN [Suspect]
     Active Substance: MOXIFLOXACIN
     Indication: Sinusitis
     Dosage: 10 TABLETS ORAL
     Route: 048
     Dates: start: 20240203, end: 20240204
  2. METHYLPREDNISOLONE [Suspect]
     Active Substance: METHYLPREDNISOLONE
  3. LINZESS [Concomitant]
     Active Substance: LINACLOTIDE
  4. SPIRONOLACTONE [Concomitant]
     Active Substance: SPIRONOLACTONE
  5. ADAPALENE [Concomitant]
     Active Substance: ADAPALENE
  6. MAGNESIUM [Concomitant]
     Active Substance: MAGNESIUM
  7. PRASTERONE [Concomitant]
     Active Substance: PRASTERONE
  8. FISH OIL [Concomitant]
     Active Substance: FISH OIL
  9. PROBIOTICS NOS [Concomitant]
     Active Substance: PROBIOTICS NOS
  10. BIOTIN [Concomitant]
     Active Substance: BIOTIN

REACTIONS (2)
  - Pain in extremity [None]
  - Pain [None]

NARRATIVE: CASE EVENT DATE: 20240203
